FAERS Safety Report 13007491 (Version 1)
Quarter: 2016Q4

REPORT INFORMATION
  Report Type: Spontaneous
  Country: IT (occurrence: IT)
  Receive Date: 20161207
  Receipt Date: 20161207
  Transmission Date: 20170207
  Serious: Yes (Hospitalization, Other)
  Sender: FDA-Public Use
  Company Number: PHHY2016IT165136

PATIENT
  Age: 47 Year
  Sex: Female

DRUGS (1)
  1. LANSOPRAZOLE. [Suspect]
     Active Substance: LANSOPRAZOLE
     Indication: ABDOMINAL PAIN UPPER
     Dosage: 30 MG, QD
     Route: 048

REACTIONS (7)
  - Diarrhoea [Unknown]
  - Throat tightness [Unknown]
  - Hypotension [Unknown]
  - Tremor [Unknown]
  - Hyperaemia [Unknown]
  - Urticaria [Unknown]
  - Vomiting [Unknown]

NARRATIVE: CASE EVENT DATE: 20161123
